FAERS Safety Report 6821302-5 (Version None)
Quarter: 2010Q3

REPORT INFORMATION
  Report Type: 
  Country: None (occurrence: None)
  Receive Date: 20100707
  Receipt Date: 20080702
  Transmission Date: 20110219
  Serious: No
  Sender: FDA-Public Use
  Company Number: US-PFIZER INC-2008055668

PATIENT
  Age: 57 Year
  Sex: Male
  Weight: 86.4 kg

DRUGS (6)
  1. ZOLOFT [Suspect]
     Indication: DEPRESSION
     Dates: start: 20080601
  2. LYRICA [Concomitant]
  3. NEXIUM [Concomitant]
  4. ALLEGRA [Concomitant]
  5. VYTORIN [Concomitant]
  6. COZAAR [Concomitant]

REACTIONS (1)
  - FAECES DISCOLOURED [None]
